FAERS Safety Report 4504405-X (Version None)
Quarter: 2004Q4

REPORT INFORMATION
  Report Type: 
  Country: None (occurrence: None)
  Receive Date: 20041118
  Receipt Date: 20041110
  Transmission Date: 20050328
  Serious: Yes (Other)
  Sender: FDA-Public Use
  Company Number: US-ROCHE-386012

PATIENT
  Age: 68 Year
  Sex: Male

DRUGS (7)
  1. CLONAZEPAM [Suspect]
     Indication: DRUG USE FOR UNKNOWN INDICATION
     Route: 065
  2. WELLBUTRIN [Suspect]
     Indication: DEPRESSION
     Route: 048
  3. WELLBUTRIN [Suspect]
     Route: 048
  4. WELLBUTRIN [Suspect]
     Route: 048
  5. WELLBUTRIN [Suspect]
     Route: 048
  6. ZOLOFT [Suspect]
     Indication: DEPRESSION
     Route: 065
  7. REMERON [Suspect]
     Indication: DRUG USE FOR UNKNOWN INDICATION
     Route: 065

REACTIONS (4)
  - ANXIETY [None]
  - BENIGN PROSTATIC HYPERPLASIA [None]
  - POLYURIA [None]
  - URINARY RETENTION [None]
